FAERS Safety Report 6810690-1 (Version None)
Quarter: 2010Q2

REPORT INFORMATION
  Report Type: 
  Country: None (occurrence: None)
  Receive Date: 20100630
  Receipt Date: 20071119
  Transmission Date: 20101027
  Serious: No
  Sender: FDA-Public Use
  Company Number: US-PFIZER INC-2007076629

PATIENT
  Sex: Female
  Weight: 64 kg

DRUGS (2)
  1. ESTRING [Suspect]
     Indication: MENOPAUSAL SYMPTOMS PROPHYLAXIS
     Dosage: 2 MG
     Route: 067
     Dates: start: 20070501
  2. ESTRING [Suspect]
     Indication: VULVOVAGINAL DRYNESS

REACTIONS (3)
  - DRUG INEFFECTIVE [None]
  - MIDDLE INSOMNIA [None]
  - PRURITUS [None]
